FAERS Safety Report 12072090 (Version 1)
Quarter: 2016Q1

REPORT INFORMATION
  Report Type: Spontaneous
  Country: US (occurrence: None)
  Receive Date: 20160211
  Receipt Date: 20160211
  Transmission Date: 20160526
  Serious: Yes (Disabling, Other)
  Sender: FDA-Public Use
  Company Number: None

PATIENT
  Age: 50 Year
  Weight: 47.63 kg

DRUGS (4)
  1. KLONOPIN [Suspect]
     Active Substance: CLONAZEPAM
     Indication: SYSTEMIC CANDIDA
     Route: 048
  2. FREEZE DRIED VETGETABLES AND FRUIT [Concomitant]
  3. INSULIN [Concomitant]
     Active Substance: INSULIN NOS
  4. HUMALOG [Concomitant]
     Active Substance: INSULIN LISPRO

REACTIONS (4)
  - Panic attack [None]
  - Cranial nerve injury [None]
  - Drug withdrawal syndrome [None]
  - Spinal cord injury [None]
